FAERS Safety Report 6239462-6 (Version None)
Quarter: 2009Q2

REPORT INFORMATION
  Report Type: 
  Country: None (occurrence: None)
  Receive Date: 20090622
  Receipt Date: 20090610
  Transmission Date: 20091009
  Serious: Yes (Other)
  Sender: FDA-Public Use
  Company Number: US-PFIZER INC-2009226119

PATIENT
  Sex: Male
  Weight: 106.59 kg

DRUGS (4)
  1. CHANTIX [Suspect]
     Indication: SMOKING CESSATION THERAPY
     Dosage: UNK
     Route: 048
     Dates: start: 20090506
  2. MONTELUKAST SODIUM [Concomitant]
     Indication: HYPERSENSITIVITY
     Dosage: UNK
  3. ADVAIR HFA [Concomitant]
     Indication: HYPERSENSITIVITY
     Dosage: UNK
  4. ALLEGRA [Concomitant]
     Indication: HYPERSENSITIVITY
     Dosage: UNK

REACTIONS (1)
  - BLOOD GLUCOSE INCREASED [None]
